FAERS Safety Report 6893087-8 (Version None)
Quarter: 2010Q3

REPORT INFORMATION
  Report Type: 
  Country: None (occurrence: None)
  Receive Date: 20100731
  Receipt Date: 20090428
  Transmission Date: 20110219
  Serious: No
  Sender: FDA-Public Use
  Company Number: US-PFIZER INC-2009205321

PATIENT
  Sex: Female

DRUGS (3)
  1. SULFASALAZINE [Suspect]
     Dosage: UNK
     Dates: start: 20080101, end: 20081001
  2. IMURAN [Suspect]
     Indication: CROHN'S DISEASE
     Dosage: UNK
  3. LOPERAMIDE HYDROCHLORIDE [Concomitant]
     Indication: CROHN'S DISEASE
     Dosage: UNK

REACTIONS (1)
  - RASH [None]
